FAERS Safety Report 4657382-5 (Version None)
Quarter: 2005Q2

REPORT INFORMATION
  Report Type: 
  Country: None (occurrence: None)
  Receive Date: 20050405
  Receipt Date: 20040707
  Transmission Date: 20051028
  Serious: Yes (Hospitalization)
  Sender: FDA-Public Use
  Company Number: 2004045490

PATIENT
  Sex: Male

DRUGS (4)
  1. GEODON [Suspect]
     Indication: DEPRESSED MOOD
     Dosage: (20 MG), ORAL
     Route: 048
  2. GEODON [Suspect]
     Indication: MERYCISM
     Dosage: (20 MG), ORAL
     Route: 048
  3. GEODON [Suspect]
     Indication: PSYCHOTIC DISORDER
     Dosage: (20 MG), ORAL
     Route: 048
  4. ATENOLOL [Concomitant]

REACTIONS (1)
  - BRADYCARDIA [None]
